FAERS Safety Report 8065435-7 (Version None)
Quarter: 2012Q1

REPORT INFORMATION
  Report Type: 
  Country: None (occurrence: None)
  Receive Date: 20120124
  Receipt Date: 20120120
  Transmission Date: 20120608
  Serious: Yes (Death, Hospitalization)
  Sender: FDA-Public Use
  Company Number: US-JNJFOC-20120108890

PATIENT
  Sex: Female

DRUGS (4)
  1. LOVENOX [Concomitant]
     Route: 058
  2. DILAUDID [Concomitant]
     Indication: PAIN
     Route: 048
  3. DOXORUBICIN HCL [Suspect]
     Indication: OVARIAN CANCER
     Route: 042
     Dates: end: 20111001
  4. FENTANYL [Concomitant]
     Indication: PAIN
     Route: 061

REACTIONS (2)
  - OVARIAN CANCER [None]
  - INTESTINAL OBSTRUCTION [None]
